FAERS Safety Report 16474567 (Version 1)
Quarter: 2019Q3

REPORT INFORMATION
  Report Type: Spontaneous
  Country: US (occurrence: US)
  Receive Date: 20190624
  Receipt Date: 20190624
  Transmission Date: 20191004
  Serious: Yes (Hospitalization)
  Sender: FDA-Public Use
  Company Number: None

PATIENT
  Age: 56 Year
  Sex: Male

DRUGS (13)
  1. GILENYA [Suspect]
     Active Substance: FINGOLIMOD HYDROCHLORIDE
     Indication: MULTIPLE SCLEROSIS
     Route: 048
     Dates: start: 20150716
  2. RITALIN [Concomitant]
     Active Substance: METHYLPHENIDATE HYDROCHLORIDE
  3. ABILIFY [Concomitant]
     Active Substance: ARIPIPRAZOLE
  4. BENEFIBER [Concomitant]
     Active Substance: STARCH, WHEAT
  5. AMPHETAMINE [Concomitant]
     Active Substance: AMPHETAMINE
  6. SIMVASTATIN. [Concomitant]
     Active Substance: SIMVASTATIN
  7. DALFAMPRIDINE. [Suspect]
     Active Substance: DALFAMPRIDINE
     Indication: MULTIPLE SCLEROSIS
     Route: 048
     Dates: start: 20181022
  8. VITAMIN D [Concomitant]
     Active Substance: VITAMIN D NOS
  9. WELLBUTRIN [Concomitant]
     Active Substance: BUPROPION HYDROCHLORIDE
  10. OXYBUTYNIN. [Concomitant]
     Active Substance: OXYBUTYNIN CHLORIDE
  11. PAROXETINE. [Concomitant]
     Active Substance: PAROXETINE
  12. FLUPHENAZINE [Concomitant]
     Active Substance: FLUPHENAZINE
  13. CENTRUM [Concomitant]
     Active Substance: VITAMINS

REACTIONS (2)
  - Depression [None]
  - Fall [None]
